FAERS Safety Report 26065656 (Version 1)
Quarter: 2025Q4

REPORT INFORMATION
  Report Type: Spontaneous
  Country: CN (occurrence: CN)
  Receive Date: 20251119
  Receipt Date: 20251119
  Transmission Date: 20260117
  Serious: Yes (Other)
  Sender: NOVARTIS
  Company Number: CN-002147023-NVSC2025CN176119

PATIENT
  Age: 48 Year
  Sex: Male

DRUGS (2)
  1. SECUKINUMAB [Suspect]
     Active Substance: SECUKINUMAB
     Indication: Psoriasis
     Dosage: 300 MG, QW (COMPLETED 5 CONSECUTIVE WEEKS OF INDUCTION THERAPY)
     Route: 058
     Dates: start: 20221009
  2. SECUKINUMAB [Suspect]
     Active Substance: SECUKINUMAB
     Dosage: 300 MG, Q4W (EVERY 4 WEEKS)
     Route: 058
     Dates: start: 20221204

REACTIONS (3)
  - Pemphigus [Unknown]
  - Rash [Unknown]
  - Psoriasis [Recovering/Resolving]
